FAERS Safety Report 9018450 (Version 1)
Quarter: 2013Q1

REPORT INFORMATION
  Report Type: Spontaneous
  Country: US (occurrence: None)
  Receive Date: 20130111
  Receipt Date: 20130111
  Transmission Date: 20140127
  Serious: Yes (Disabling)
  Sender: FDA-Public Use
  Company Number: None

PATIENT
  Age: 84 Year
  Sex: Male
  Weight: 76 kg

DRUGS (2)
  1. DABIGATRAN [Suspect]
     Route: 048
  2. AMIODARONE [Suspect]
     Route: 048

REACTIONS (2)
  - Fall [None]
  - Subdural haematoma [None]
